FAERS Safety Report 6723159-X (Version None)
Quarter: 2010Q2

REPORT INFORMATION
  Report Type: 
  Country: None (occurrence: None)
  Receive Date: 20100513
  Receipt Date: 20100501
  Transmission Date: 20101027
  Serious: Yes (Other)
  Sender: FDA-Public Use
  Company Number: US-JNJFOC-20100502215

PATIENT
  Age: 3 Year
  Sex: Female
  Weight: 16.33 kg

DRUGS (2)
  1. CHILDREN'S TYLENOL LIQUID DYE-FREE CHERRY [Suspect]
     Route: 048
  2. CHILDREN'S TYLENOL LIQUID DYE-FREE CHERRY [Suspect]
     Indication: PYREXIA
     Route: 048

REACTIONS (4)
  - DRUG INEFFECTIVE [None]
  - EAR INFECTION [None]
  - PRODUCT QUALITY ISSUE [None]
  - PYREXIA [None]
